FAERS Safety Report 13369422 (Version 3)
Quarter: 2017Q2

REPORT INFORMATION
  Report Type: Spontaneous
  Country: US (occurrence: US)
  Receive Date: 20170324
  Receipt Date: 20170511
  Transmission Date: 20170830
  Serious: Yes (Other)
  Sender: FDA-Public Use
  Company Number: US-PFIZER INC-2017123125

PATIENT
  Age: 47 Year
  Sex: Female

DRUGS (2)
  1. XELJANZ [Suspect]
     Active Substance: TOFACITINIB CITRATE
     Indication: RHEUMATOID ARTHRITIS
     Dosage: 5 MG, 2X/DAY
     Route: 048
  2. XELJANZ [Suspect]
     Active Substance: TOFACITINIB CITRATE
     Dosage: 5 MG, UNK

REACTIONS (11)
  - Lung neoplasm malignant [Unknown]
  - Pain [Recovering/Resolving]
  - Joint range of motion decreased [Unknown]
  - Contusion [Unknown]
  - Pain in extremity [Unknown]
  - Abdominal discomfort [Unknown]
  - Joint swelling [Not Recovered/Not Resolved]
  - Pulmonary mass [Unknown]
  - Swelling [Recovering/Resolving]
  - Arthralgia [Unknown]
  - Musculoskeletal stiffness [Unknown]
